FAERS Safety Report 15048576 (Version 1)
Quarter: 2018Q2

REPORT INFORMATION
  Report Type: Spontaneous
  Country: DE (occurrence: DE)
  Receive Date: 20180622
  Receipt Date: 20180622
  Transmission Date: 20180711
  Serious: Yes (Death, Hospitalization)
  Sender: FDA-Public Use
  Company Number: DE-TEVA-2018-DE-912122

PATIENT
  Age: 86 Year
  Sex: Female
  Weight: 67 kg

DRUGS (15)
  1. FLUOROURACIL. [Suspect]
     Active Substance: FLUOROURACIL
     Route: 040
     Dates: start: 20130902, end: 20140121
  2. FOLINIC ACID [Suspect]
     Active Substance: LEUCOVORIN
     Route: 042
     Dates: start: 20130902, end: 20140121
  3. AVASTIN [Suspect]
     Active Substance: BEVACIZUMAB
     Indication: COLORECTAL CANCER
     Route: 042
     Dates: start: 20130902, end: 20140121
  4. AVASTIN [Suspect]
     Active Substance: BEVACIZUMAB
     Route: 042
     Dates: start: 20140331, end: 20140331
  5. PANTOZOL [Concomitant]
     Active Substance: PANTOPRAZOLE SODIUM
     Indication: PROPHYLAXIS
     Dosage: 40 MILLIGRAM DAILY; 1-0-1
     Route: 048
     Dates: start: 20130726, end: 20140428
  6. FLUOROURACIL. [Suspect]
     Active Substance: FLUOROURACIL
     Indication: COLORECTAL CANCER
     Dosage: DAILY DOSE: 3500 MG MILLGRAM(S) EVERY 15 DAYS
     Route: 041
     Dates: start: 20140213, end: 20140401
  7. OXALIPLATIN. [Suspect]
     Active Substance: OXALIPLATIN
     Dosage: DAILY DOSE: 130 MG MILLGRAM(S) EVERY 15 DAYS
     Route: 042
     Dates: start: 20140213, end: 20140331
  8. LYRICA [Concomitant]
     Active Substance: PREGABALIN
     Indication: POLYNEUROPATHY
     Dosage: 75 MILLIGRAM DAILY; 1-0-1
     Route: 048
     Dates: start: 20140110, end: 20140428
  9. PALLADON [Concomitant]
     Active Substance: HYDROMORPHONE
     Indication: TUMOUR PAIN
     Dosage: 4 MILLIGRAM DAILY; 1-0-1
     Route: 048
     Dates: start: 20140110, end: 20140428
  10. FLUOROURACIL. [Suspect]
     Active Substance: FLUOROURACIL
     Route: 040
     Dates: start: 20140213, end: 20140331
  11. FLUOROURACIL. [Suspect]
     Active Substance: FLUOROURACIL
     Dosage: OVER 48HRS
     Route: 041
  12. NOVALGIN (METAMIZOLE SODIUM) [Concomitant]
     Active Substance: METAMIZOLE SODIUM
     Indication: TUMOUR PAIN
     Dosage: 20 GTT DAILY; 1-1-1
     Route: 048
     Dates: start: 20140110, end: 20140428
  13. OXALIPLATIN INJECTION 50MG/10 ML+100MG/20ML [Suspect]
     Active Substance: OXALIPLATIN
     Indication: COLORECTAL CANCER
     Dosage: DAILY DOSE: 150 MG MILLGRAM(S) EVERY 15 DAYS
     Route: 042
     Dates: start: 20130902, end: 20140121
  14. FOLINIC ACID [Suspect]
     Active Substance: LEUCOVORIN
     Route: 042
     Dates: start: 20140213, end: 20140331
  15. TARGIN [Concomitant]
     Active Substance: NALOXONE HYDROCHLORIDE\OXYCODONE HYDROCHLORIDE
     Indication: TUMOUR PAIN
     Dosage: 5/2.5 MG, 1-0-1
     Route: 048
     Dates: start: 20140212, end: 20140428

REACTIONS (9)
  - Nausea [Recovered/Resolved]
  - Cerebrovascular accident [Fatal]
  - Vomiting [Recovered/Resolved]
  - Malignant neoplasm progression [Unknown]
  - Gastric ulcer [Recovered/Resolved]
  - Gastrooesophageal reflux disease [Recovered/Resolved]
  - Dehydration [Recovered/Resolved]
  - Hemiparesis [Unknown]
  - Duodenal ulcer [Recovered/Resolved]

NARRATIVE: CASE EVENT DATE: 20140131
